FAERS Safety Report 8451776-8 (Version None)
Quarter: 2012Q2

REPORT INFORMATION
  Report Type: 
  Country: None (occurrence: None)
  Receive Date: 20120620
  Receipt Date: 20120318
  Transmission Date: 20120825
  Serious: No
  Sender: FDA-Public Use
  Company Number: US-VERTEX PHARMACEUTICALS INC.-AE-2012-003866

PATIENT
  Sex: Male
  Weight: 77.18 kg

DRUGS (7)
  1. SINGULAIR [Concomitant]
     Route: 048
  2. INCIVEK [Suspect]
     Indication: HEPATITIS C
     Route: 048
     Dates: start: 20120217
  3. CYCLOBENZAPRINE [Concomitant]
     Indication: HYPOTONIA
     Route: 048
  4. IBUPROFEN [Concomitant]
     Indication: PAIN
     Route: 048
  5. SYMBICORT [Concomitant]
     Indication: CHRONIC OBSTRUCTIVE PULMONARY DISEASE
  6. RIBAVIRIN [Concomitant]
     Indication: HEPATITIS C
     Route: 048
     Dates: start: 20120217
  7. PEGINTERFERON ALFA-2A [Concomitant]
     Indication: HEPATITIS C
     Route: 058
     Dates: start: 20120217

REACTIONS (6)
  - FATIGUE [None]
  - DRUG DOSE OMISSION [None]
  - DIZZINESS [None]
  - NAUSEA [None]
  - DYSPNOEA [None]
  - DECREASED APPETITE [None]
